FAERS Safety Report 10042384 (Version 2)
Quarter: 2014Q2

REPORT INFORMATION
  Report Type: Report from Study
  Country: GH (occurrence: GH)
  Receive Date: 20140327
  Receipt Date: 20140402
  Transmission Date: 20141212
  Serious: Yes (Death, Other)
  Sender: FDA-Public Use
  Company Number: PHHY2014GH036767

PATIENT
  Age: 15 Year
  Sex: Female

DRUGS (4)
  1. GLIVEC [Suspect]
     Indication: CHRONIC MYELOID LEUKAEMIA
     Dosage: 600 MG
     Dates: start: 20130603, end: 20130610
  2. GLIVEC [Suspect]
     Dosage: 400 MG, UNK
     Dates: start: 20130624, end: 20140220
  3. GLIVEC [Suspect]
     Dosage: 600 MG, UNK
     Dates: start: 20140220
  4. CYTOSINE ARABINOSIDE [Concomitant]
     Indication: CHRONIC MYELOID LEUKAEMIA
     Dosage: 100 MG, DAILY
     Route: 042
     Dates: start: 20130603, end: 20130609

REACTIONS (6)
  - Death [Fatal]
  - Blast crisis in myelogenous leukaemia [Unknown]
  - Chronic myeloid leukaemia [Unknown]
  - Leukaemia recurrent [Unknown]
  - Febrile neutropenia [Unknown]
  - No therapeutic response [Unknown]
